FAERS Safety Report 18347386 (Version 1)
Quarter: 2020Q4

REPORT INFORMATION
  Report Type: Spontaneous
  Country: US (occurrence: US)
  Receive Date: 20201006
  Receipt Date: 20201006
  Transmission Date: 20210114
  Serious: No
  Sender: FDA-Public Use
  Company Number: US-BIOGEN-2020BI00930675

PATIENT
  Sex: Female

DRUGS (3)
  1. TYLENOL [Concomitant]
     Active Substance: ACETAMINOPHEN
     Route: 065
  2. TECFIDERA [Suspect]
     Active Substance: DIMETHYL FUMARATE
     Route: 048
  3. TECFIDERA [Suspect]
     Active Substance: DIMETHYL FUMARATE
     Indication: MULTIPLE SCLEROSIS
     Dosage: TAKE (120MG) 1 CAPSULE BY MOUTH TWICE DAILY FOR THE FIRST 7 DAYS, THEN (240MG) 1 CAPSULE TWICE DA...
     Route: 048
     Dates: start: 202006

REACTIONS (2)
  - Paraesthesia [Unknown]
  - Hot flush [Unknown]
